FAERS Safety Report 12631304 (Version 2)
Quarter: 2016Q3

REPORT INFORMATION
  Report Type: Spontaneous
  Country: US (occurrence: US)
  Receive Date: 20160808
  Receipt Date: 20160808
  Transmission Date: 20161109
  Serious: No
  Sender: FDA-Public Use
  Company Number: US-BEH-2015053218

PATIENT
  Sex: Female
  Weight: 82 kg

DRUGS (30)
  1. POTASSIUM [Concomitant]
     Active Substance: POTASSIUM
  2. HIZENTRA [Suspect]
     Active Substance: HUMAN IMMUNOGLOBULIN G
     Indication: HYPER IGM SYNDROME
     Dosage: 2 GM 10 ML VIAL
     Route: 058
  3. DIPHENHYDRAMINE. [Concomitant]
     Active Substance: DIPHENHYDRAMINE
  4. FLONASE [Concomitant]
     Active Substance: FLUTICASONE PROPIONATE
  5. ADVIL [Concomitant]
     Active Substance: IBUPROFEN
  6. AZITHROMYCIN ANHYDROUS. [Concomitant]
     Active Substance: AZITHROMYCIN ANHYDROUS
  7. VOLTAREN [Concomitant]
     Active Substance: DICLOFENAC SODIUM
  8. FISH OIL [Concomitant]
     Active Substance: FISH OIL
  9. SYNTHROID [Concomitant]
     Active Substance: LEVOTHYROXINE SODIUM
  10. TRAZODONE [Concomitant]
     Active Substance: TRAZODONE HYDROCHLORIDE
  11. HYDROCODONE [Concomitant]
     Active Substance: HYDROCODONE
  12. LEXAPRO [Concomitant]
     Active Substance: ESCITALOPRAM OXALATE
  13. MUPIROCIN. [Concomitant]
     Active Substance: MUPIROCIN
  14. GABAPENTIN. [Concomitant]
     Active Substance: GABAPENTIN
  15. CRESTOR [Concomitant]
     Active Substance: ROSUVASTATIN CALCIUM
  16. SINGULAIR [Concomitant]
     Active Substance: MONTELUKAST SODIUM
  17. ACETAMINOPHEN. [Concomitant]
     Active Substance: ACETAMINOPHEN
  18. EPIPEN [Concomitant]
     Active Substance: EPINEPHRINE
     Indication: ANAPHYLACTIC REACTION
  19. AMBIEN [Concomitant]
     Active Substance: ZOLPIDEM TARTRATE
  20. DIAZEPAM. [Concomitant]
     Active Substance: DIAZEPAM
  21. PROAIR HFA [Concomitant]
     Active Substance: ALBUTEROL SULFATE
  22. HIZENTRA [Suspect]
     Active Substance: HUMAN IMMUNOGLOBULIN G
     Indication: IMMUNODEFICIENCY COMMON VARIABLE
     Dosage: 4 GM 20 ML VIAL
     Route: 058
  23. TROKENDI [Concomitant]
     Active Substance: TOPIRAMATE
  24. ZOCOR [Concomitant]
     Active Substance: SIMVASTATIN
  25. COLCRYS [Concomitant]
     Active Substance: COLCHICINE
  26. LIDOCAINE/PRILOCAINE [Concomitant]
     Active Substance: LIDOCAINE\PRILOCAINE
  27. ZETIA [Concomitant]
     Active Substance: EZETIMIBE
  28. TOPIRAMATE. [Concomitant]
     Active Substance: TOPIRAMATE
  29. CYMBALTA [Concomitant]
     Active Substance: DULOXETINE HYDROCHLORIDE
  30. CLOBETASOL [Concomitant]
     Active Substance: CLOBETASOL

REACTIONS (1)
  - Rash [Unknown]
